FAERS Safety Report 23961691 (Version 2)
Quarter: 2024Q2

REPORT INFORMATION
  Report Type: Spontaneous
  Country: DE (occurrence: DE)
  Receive Date: 20240611
  Receipt Date: 20240613
  Transmission Date: 20240716
  Serious: No
  Sender: FDA-Public Use
  Company Number: DE-PFIZER INC-202300248026

PATIENT
  Age: 57 Year
  Sex: Male

DRUGS (5)
  1. TADALAFIL [Interacting]
     Active Substance: TADALAFIL
     Indication: Product used for unknown indication
     Dosage: UNK, UNKNOWN
     Route: 065
  2. SOMATROPIN [Interacting]
     Active Substance: SOMATROPIN
     Indication: Hypopituitarism
     Dosage: UNK UNK, UNKNOWN
     Route: 065
  3. SOMATROPIN [Interacting]
     Active Substance: SOMATROPIN
     Indication: Growth hormone deficiency
  4. SOMATROPIN [Interacting]
     Active Substance: SOMATROPIN
     Indication: Hypothalamo-pituitary disorder
  5. AVANAFIL [Interacting]
     Active Substance: AVANAFIL
     Indication: Product used for unknown indication
     Dosage: UNK UNK, UNKNOWN
     Route: 065

REACTIONS (9)
  - Inhibitory drug interaction [Unknown]
  - Muscle tightness [Recovering/Resolving]
  - Diarrhoea [Recovering/Resolving]
  - Abdominal discomfort [Recovering/Resolving]
  - Fatigue [Recovering/Resolving]
  - Hyperhidrosis [Recovering/Resolving]
  - Back pain [Recovering/Resolving]
  - Headache [Recovering/Resolving]
  - Vision blurred [Unknown]
